FAERS Safety Report 19206737 (Version 1)
Quarter: 2021Q2

REPORT INFORMATION
  Report Type: Other
  Country: US (occurrence: US)
  Receive Date: 20210430
  Receipt Date: 20210430
  Transmission Date: 20210717
  Serious: Yes (Hospitalization)
  Sender: FDA-Public Use
  Company Number: US-ROCHE-2820509

PATIENT
  Sex: Female

DRUGS (1)
  1. ACTEMRA [Suspect]
     Active Substance: TOCILIZUMAB
     Indication: AUTOIMMUNE DISORDER
     Route: 058

REACTIONS (4)
  - Fall [Unknown]
  - Off label use [Unknown]
  - Lower limb fracture [Unknown]
  - Ankle fracture [Unknown]
